FAERS Safety Report 7708208 (Version 3)
Quarter: 2013Q1

REPORT INFORMATION
  Report Type: Spontaneous
  Country: US (occurrence: US)
  Receive Date: 20101214
  Receipt Date: 20130315
  Transmission Date: 20140127
  Serious: No
  Sender: FDA-Public Use
  Company Number: US-ASTRAZENECA-2010SE05336

PATIENT
  Age: 87 Year
  Sex: Female
  Weight: 54.4 kg

DRUGS (14)
  1. TOPROL XL [Suspect]
     Route: 048
  2. CRESTOR [Suspect]
     Indication: BLOOD CHOLESTEROL INCREASED
     Route: 048
     Dates: start: 2009
  3. CRESTOR [Suspect]
     Indication: BLOOD CHOLESTEROL INCREASED
     Route: 048
     Dates: start: 201102
  4. CRESTOR [Suspect]
     Indication: BLOOD CHOLESTEROL INCREASED
     Route: 048
     Dates: start: 201202, end: 201211
  5. CRESTOR [Suspect]
     Indication: BLOOD CHOLESTEROL INCREASED
     Route: 048
     Dates: start: 20130204
  6. METOPROLOL (NON-AZ DRUG) [Suspect]
  7. TYLENOL [Concomitant]
     Indication: PAIN
  8. BIOTINE [Concomitant]
  9. FUROSEMIDE [Concomitant]
  10. BLOOD PRESSURE MEDICATION [Concomitant]
  11. AMLODIPINE [Concomitant]
  12. METAMUCIL [Concomitant]
  13. LIPITOR [Concomitant]
  14. PRAVASTATIN [Concomitant]

REACTIONS (5)
  - Cough [Unknown]
  - Alopecia [Not Recovered/Not Resolved]
  - Dry mouth [Unknown]
  - Sleep disorder [Unknown]
  - Intentional drug misuse [Unknown]
